FAERS Safety Report 8567768-4 (Version None)
Quarter: 2012Q3

REPORT INFORMATION
  Report Type: 
  Country: None (occurrence: None)
  Receive Date: 20120803
  Receipt Date: 20120730
  Transmission Date: 20120928
  Serious: Yes (Life-Threatening)
  Sender: FDA-Public Use
  Company Number: GB-ASTRAZENECA-2012SE53801

PATIENT
  Sex: Male

DRUGS (4)
  1. DIGOXIN [Concomitant]
  2. LOSARTAN POTASSIUM [Concomitant]
  3. ASPIRIN [Concomitant]
  4. QUETIAPINE [Suspect]
     Indication: INSOMNIA
     Route: 048
     Dates: start: 20071201, end: 20080701

REACTIONS (68)
  - CONJUNCTIVAL HAEMORRHAGE [None]
  - TOOTH ABSCESS [None]
  - MOUTH ULCERATION [None]
  - HYPOTONIA [None]
  - RHONCHI [None]
  - WITHDRAWAL SYNDROME [None]
  - HAEMORRHAGE [None]
  - COUGH [None]
  - GASTRITIS [None]
  - HEADACHE [None]
  - HYPERTENSION [None]
  - RESPIRATORY DISTRESS [None]
  - TOOTHACHE [None]
  - ASTHENIA [None]
  - ABDOMINAL PAIN [None]
  - ARRHYTHMIA [None]
  - CONFUSIONAL STATE [None]
  - HYPERVENTILATION [None]
  - LUNG DISORDER [None]
  - MUSCULAR WEAKNESS [None]
  - NAUSEA [None]
  - SYNCOPE [None]
  - ABNORMAL DREAMS [None]
  - JOINT SWELLING [None]
  - OCULAR HYPERAEMIA [None]
  - FLATULENCE [None]
  - LOCAL SWELLING [None]
  - SALIVARY HYPERSECRETION [None]
  - INSOMNIA [None]
  - LOCALISED OEDEMA [None]
  - PNEUMONITIS [None]
  - STOMATITIS [None]
  - HYPERHIDROSIS [None]
  - RHINITIS [None]
  - DRUG INEFFECTIVE [None]
  - ABSCESS NECK [None]
  - CONTUSION [None]
  - CARDIOTOXICITY [None]
  - DEPRESSED LEVEL OF CONSCIOUSNESS [None]
  - EMOTIONAL DISORDER [None]
  - GLOSSITIS [None]
  - DISTURBANCE IN ATTENTION [None]
  - RETCHING [None]
  - FAECES PALE [None]
  - DYSKINESIA [None]
  - LIP SWELLING [None]
  - ARTHRALGIA [None]
  - ORAL PAIN [None]
  - OROPHARYNGEAL PAIN [None]
  - THINKING ABNORMAL [None]
  - DIZZINESS [None]
  - DRY EYE [None]
  - ENTERITIS [None]
  - GAIT DISTURBANCE [None]
  - GINGIVITIS [None]
  - DRUG EFFECT INCREASED [None]
  - OESOPHAGITIS [None]
  - PRURITUS [None]
  - DYSPHAGIA [None]
  - TARDIVE DYSKINESIA [None]
  - ABDOMINAL DISTENSION [None]
  - MOUTH HAEMORRHAGE [None]
  - EATING DISORDER [None]
  - DIARRHOEA [None]
  - MICTURITION URGENCY [None]
  - NOCTURIA [None]
  - UMBILICAL HERNIA [None]
  - DYSPNOEA [None]
